FAERS Safety Report 5312917-4 (Version None)
Quarter: 2007Q1

REPORT INFORMATION
  Report Type: 
  Country: None (occurrence: None)
  Receive Date: 20070201
  Receipt Date: 20061107
  Transmission Date: 20070707
  Serious: Yes (Hospitalization)
  Sender: FDA-Public Use
  Company Number: VNL_0289_2006

PATIENT
  Age: 66 Year
  Sex: Male
  Weight: 98.4306 kg

DRUGS (16)
  1. APOKYN [Suspect]
     Indication: PARKINSON'S DISEASE
     Dosage: 0.4 ML QDAY SC
     Route: 058
     Dates: start: 20061024, end: 20061028
  2. APOKYN [Suspect]
     Indication: PARKINSON'S DISEASE
     Dosage: 0.2 ML PRN SC
     Route: 058
     Dates: start: 20061017, end: 20061024
  3. PIKOSYN [Concomitant]
  4. LASIX [Concomitant]
  5. DIOVAN [Concomitant]
  6. DIGITEK [Concomitant]
  7. COUMADIN [Concomitant]
  8. SPIRONOLACTONE [Concomitant]
  9. VITAMIN CAP [Concomitant]
  10. ALLOPURINOL [Concomitant]
  11. SINEMET [Concomitant]
  12. MIRAPAX [Concomitant]
  13. LEVOXYL [Concomitant]
  14. TRIMETHOBENZAMIDE [Concomitant]
  15. SPIRIVA [Concomitant]
  16. IRON [Concomitant]

REACTIONS (1)
  - CARDIAC FAILURE CONGESTIVE [None]
